FAERS Safety Report 10510090 (Version 1)
Quarter: 2014Q4

REPORT INFORMATION
  Report Type: Spontaneous
  Country: US (occurrence: US)
  Receive Date: 20141010
  Receipt Date: 20141010
  Transmission Date: 20150528
  Serious: Yes (Hospitalization, Other)
  Sender: FDA-Public Use
  Company Number: US-SA-2014SA138671

PATIENT
  Age: 56 Year
  Sex: Male

DRUGS (1)
  1. FABRAZYME [Suspect]
     Active Substance: AGALSIDASE BETA
     Indication: FABRY^S DISEASE
     Route: 041

REACTIONS (8)
  - Anxiety [Unknown]
  - Atrial fibrillation [Unknown]
  - Pyrexia [Unknown]
  - Tremor [Recovered/Resolved]
  - Aphasia [Recovered/Resolved]
  - Chromaturia [Unknown]
  - Cerebrovascular accident [Recovered/Resolved]
  - Disorientation [Recovered/Resolved]

NARRATIVE: CASE EVENT DATE: 20140928
